FAERS Safety Report 5029573-5 (Version None)
Quarter: 2006Q2

REPORT INFORMATION
  Report Type: 
  Country: None (occurrence: None)
  Receive Date: 20060615
  Receipt Date: 20060615
  Transmission Date: 20061013
  Serious: Yes (Hospitalization)
  Sender: FDA-Public Use
  Company Number: None

PATIENT
  Sex: Female
  Weight: 60 kg

DRUGS (2)
  1. MACUGEN [Suspect]
     Indication: MACULAR DEGENERATION
     Dates: start: 20060307
  2. MACUGEN [Suspect]
     Indication: MACULAR DEGENERATION
     Dates: start: 20060425

REACTIONS (2)
  - NAUSEA [None]
  - VOMITING [None]
